FAERS Safety Report 9053564 (Version 3)
Quarter: 2013Q2

REPORT INFORMATION
  Report Type: Spontaneous
  Country: US (occurrence: None)
  Receive Date: 20130117
  Receipt Date: 20130530
  Transmission Date: 20140414
  Serious: Yes (Other)
  Sender: FDA-Public Use
  Company Number: KAD201210-000483

PATIENT
  Age: 35 Year
  Sex: Female

DRUGS (10)
  1. RIBASPHERE [Suspect]
  2. PEGASYS [Suspect]
  3. PRENATAL VITAMINS [Suspect]
     Indication: PREGNANCY
     Dates: start: 2012
  4. CHLORTHALIDONE [Suspect]
     Indication: HYPERTENSION
     Dates: end: 201208
  5. METOPROLOL SUCCINATE [Suspect]
     Indication: HYPERTENSION
     Dates: end: 201207
  6. ENALAPRIL [Suspect]
     Indication: HYPERTENSION
     Dates: end: 201207
  7. AMBIEN [Suspect]
     Indication: INSOMNIA
     Dates: start: 201207, end: 201211
  8. LABETALOL (LABETALOL) [Suspect]
     Indication: HYPERTENSION
     Dates: start: 201207
  9. SEROQUEL [Suspect]
     Indication: BIPOLAR DISORDER
     Dates: end: 201207
  10. IRON [Suspect]
     Indication: ANAEMIA

REACTIONS (6)
  - Exposure during pregnancy [None]
  - Exposure via body fluid [None]
  - Gestational diabetes [None]
  - Anaemia [None]
  - Hypertension [None]
  - Condition aggravated [None]
